FAERS Safety Report 21341232 (Version 1)
Quarter: 2022Q3

REPORT INFORMATION
  Report Type: Spontaneous
  Country: PT (occurrence: PT)
  Receive Date: 20220916
  Receipt Date: 20220916
  Transmission Date: 20221027
  Serious: Yes (Death, Hospitalization, Other)
  Sender: FDA-Public Use
  Company Number: PT-ALKEM LABORATORIES LIMITED-CN-ALKEM-2022-09700

PATIENT
  Age: 66 Year
  Sex: Male

DRUGS (1)
  1. COLCHICINE [Suspect]
     Active Substance: COLCHICINE
     Indication: Product used for unknown indication
     Dosage: 90 MILLIGRAM (SERUM COLCHICINE LEVEL)
     Route: 048

REACTIONS (7)
  - Acidosis [Fatal]
  - Acute kidney injury [Fatal]
  - Acute respiratory failure [Fatal]
  - Completed suicide [Fatal]
  - Coagulopathy [Fatal]
  - Myocardial injury [Fatal]
  - Liver injury [Fatal]
